FAERS Safety Report 21283388 (Version 3)
Quarter: 2022Q3

REPORT INFORMATION
  Report Type: Report from Study
  Country: US (occurrence: None)
  Receive Date: 20220901
  Receipt Date: 20220916
  Transmission Date: 20221027
  Serious: Yes (Hospitalization)
  Sender: FDA-Public Use
  Company Number: US-Eisai Medical Research-EC-2022-122372

PATIENT
  Age: 63 Year
  Sex: Female

DRUGS (3)
  1. LENVATINIB [Suspect]
     Active Substance: LENVATINIB
     Indication: Ductal adenocarcinoma of pancreas
     Route: 048
     Dates: start: 20220728, end: 20220823
  2. PEMBROLIZUMAB [Suspect]
     Active Substance: PEMBROLIZUMAB
     Indication: Ductal adenocarcinoma of pancreas
     Route: 041
     Dates: start: 20220728, end: 20220728
  3. BELZUTIFAN [Suspect]
     Active Substance: BELZUTIFAN
     Indication: Ductal adenocarcinoma of pancreas
     Route: 048
     Dates: start: 20220728, end: 20220728

REACTIONS (1)
  - Abdominal pain [Not Recovered/Not Resolved]

NARRATIVE: CASE EVENT DATE: 20220824
